FAERS Safety Report 7115647-1 (Version None)
Quarter: 2010Q4

REPORT INFORMATION
  Report Type: 
  Country: None (occurrence: None)
  Receive Date: 20101122
  Receipt Date: 20101111
  Transmission Date: 20110411
  Serious: Yes (Other)
  Sender: FDA-Public Use
  Company Number: JP-JNJFOC-20101104848

PATIENT
  Age: 73 Year
  Sex: Male

DRUGS (4)
  1. RISPERDAL [Suspect]
     Indication: ILL-DEFINED DISORDER
     Route: 048
  2. RISPERDAL [Suspect]
     Dosage: ONCE OR TWICE DAILY ON AN AS NEEDED BASIS
     Route: 048
  3. SEROQUEL [Suspect]
     Indication: ILL-DEFINED DISORDER
     Route: 048
  4. RIVOTRIL [Suspect]
     Indication: ILL-DEFINED DISORDER
     Route: 048

REACTIONS (2)
  - RASH [None]
  - STEVENS-JOHNSON SYNDROME [None]
